FAERS Safety Report 5427448-0 (Version None)
Quarter: 2007Q3

REPORT INFORMATION
  Report Type: 
  Country: None (occurrence: None)
  Receive Date: 20070824
  Receipt Date: 20070824
  Transmission Date: 20080115
  Serious: Yes (Hospitalization)
  Sender: FDA-Public Use
  Company Number: None

PATIENT
  Sex: Female
  Weight: 63.4 kg

DRUGS (15)
  1. VANCOMYCIN [Suspect]
     Indication: ARTHRITIS BACTERIAL
     Dosage: 1.2GM EVERY 12 HOURS IV
     Route: 042
     Dates: start: 20070806, end: 20070815
  2. CALCIUM CARBONATE [Concomitant]
  3. ZYRTEC [Concomitant]
  4. CIPRO [Concomitant]
  5. DOCUSATE SOD [Concomitant]
  6. ADVAIR DISKUS 100/50 [Concomitant]
  7. POTASSIUM CL [Concomitant]
  8. SENNA-DOCUSATE SODIUM [Concomitant]
  9. MAALOX PLUS SUSP [Concomitant]
  10. TUMS [Concomitant]
  11. SKELAXIN [Concomitant]
  12. PROCHLORPERAZINE [Concomitant]
  13. DARVOCET [Concomitant]
  14. AMBIEN [Concomitant]
  15. COUMADIN [Concomitant]

REACTIONS (2)
  - CHILLS [None]
  - PYREXIA [None]
